FAERS Safety Report 8079328-2 (Version None)
Quarter: 2012Q1

REPORT INFORMATION
  Report Type: 
  Country: None (occurrence: None)
  Receive Date: 20120128
  Receipt Date: 20110822
  Transmission Date: 20120608
  Serious: No
  Sender: FDA-Public Use
  Company Number: US-ABBOTT-11P-163-0848363-00

PATIENT
  Age: 58 Year
  Sex: Male

DRUGS (4)
  1. HUMIRA [Suspect]
     Indication: PSORIASIS
  2. QUINAPRIL [Concomitant]
     Indication: BLOOD PRESSURE
  3. METOFORMIN [Concomitant]
     Indication: DIABETES MELLITUS
  4. GLIMEPIRIDE [Concomitant]
     Indication: DIABETES MELLITUS

REACTIONS (1)
  - LACERATION [None]
